FAERS Safety Report 5319384-5 (Version None)
Quarter: 2007Q2

REPORT INFORMATION
  Report Type: 
  Country: None (occurrence: None)
  Receive Date: 20070508
  Receipt Date: 20070430
  Transmission Date: 20071010
  Serious: Yes (Hospitalization, Other)
  Sender: FDA-Public Use
  Company Number: US-ELI_LILLY_AND_COMPANY-US200705000025

PATIENT
  Age: 26 Year
  Sex: Female

DRUGS (3)
  1. HUMALOG [Suspect]
     Dosage: UNK, UNKNOWN
     Dates: start: 20020101
  2. HUMALOG [Suspect]
     Dosage: 15 U, UNKNOWN
     Dates: start: 20020101
  3. INSULIN [Concomitant]
     Dosage: UNK, UNKNOWN
     Dates: start: 19630101, end: 20020101

REACTIONS (5)
  - BLINDNESS [None]
  - BLOOD GLUCOSE INCREASED [None]
  - CATARACT [None]
  - DIABETIC RETINOPATHY [None]
  - RETINAL DETACHMENT [None]
